FAERS Safety Report 10077577 (Version 2)
Quarter: 2014Q2

REPORT INFORMATION
  Report Type: Spontaneous
  Country: US (occurrence: US)
  Receive Date: 20140414
  Receipt Date: 20140414
  Transmission Date: 20141212
  Serious: No
  Sender: FDA-Public Use
  Company Number: US-BANPHARM-20131869

PATIENT
  Age: 71 Year
  Sex: Male
  Weight: 86.18 kg

DRUGS (2)
  1. ALEVE LIQUID GELS 220 MG [Suspect]
     Dosage: 2 DF, PRN,
     Route: 048
     Dates: end: 20131026
  2. ASPIRIN [Concomitant]

REACTIONS (4)
  - Pruritus [Not Recovered/Not Resolved]
  - Urticaria [Recovering/Resolving]
  - Pruritus [Recovered/Resolved]
  - Urticaria [Recovered/Resolved]
